FAERS Safety Report 22389958 (Version 1)
Quarter: 2023Q2

REPORT INFORMATION
  Report Type: Spontaneous
  Country: GB (occurrence: GB)
  Receive Date: 20230531
  Receipt Date: 20230531
  Transmission Date: 20230722
  Serious: Yes (Other)
  Sender: FDA-Public Use
  Company Number: None

PATIENT

DRUGS (15)
  1. ARIPIPRAZOLE [Suspect]
     Active Substance: ARIPIPRAZOLE
     Indication: Product used for unknown indication
     Dosage: 15 MILLIGRAM, QD (ONE TO BE TAKEN EACH DAY ONCE )
     Route: 065
  2. ATORVASTATIN [Concomitant]
     Active Substance: ATORVASTATIN
     Dosage: 1 DOSAGE FORM, QD (ONE TO BE TAKEN EACH DAY )
     Route: 065
  3. CETIRIZINE [Concomitant]
     Active Substance: CETIRIZINE HYDROCHLORIDE
     Dosage: 2 DOSAGE FORM, QD (TWO TO BE TAKEN DAILY )
     Route: 065
  4. ESOMEPRAZOLE [Concomitant]
     Active Substance: ESOMEPRAZOLE
     Dosage: 1 DOSAGE FORM, QD (ONE TO BE TAKEN EACH DAY )
     Route: 065
  5. HYDROXOCOBALAMIN [Concomitant]
     Active Substance: HYDROXOCOBALAMIN
     Indication: Vitamin B12 deficiency
     Dosage: UNK (1 AMP EVERY 3 MONTHS, PT SELF ADMINISTERS AT HOME)
     Route: 030
  6. MELATONIN [Concomitant]
     Active Substance: MELATONIN
     Dosage: UNK
     Route: 065
  7. MEBEVERINE [Concomitant]
     Active Substance: MEBEVERINE
     Dosage: 1 DOSAGE FORM, TID (ONE TO BE TAKEN THREE TIMES A DAY)
     Route: 065
  8. PREGABALIN [Concomitant]
     Active Substance: PREGABALIN
     Dosage: 1 DOSAGE FORM, BID (ONE TO BE TAKEN TWICE A DAY )
     Route: 065
  9. ROPINIROLE [Concomitant]
     Active Substance: ROPINIROLE
     Dosage: 1 DOSAGE FORM, QD (1 TAB NOCTE)
     Route: 065
  10. ALBUTEROL [Concomitant]
     Active Substance: ALBUTEROL
     Dosage: TAKE ONE OR TWO PUFFS WHEN NEEDED
     Route: 065
  11. TADALAFIL [Concomitant]
     Active Substance: TADALAFIL
     Dosage: 1 DOSAGE FORM, QD (ONE TO BE TAKEN EACH DAY)
     Route: 065
  12. TIOTROPIUM [Concomitant]
     Active Substance: TIOTROPIUM
     Dosage: UNK, QD ( 2 PUFFS TO BE INHALED ONCE DAILY)
     Route: 065
  13. TRAMADOL [Concomitant]
     Active Substance: TRAMADOL
     Dosage: 1 DOSAGE FORM, BID (ONE TO BE TAKEN TWICE A DAY 56 TABLET)
     Route: 065
  14. VENLAFAXINE [Concomitant]
     Active Substance: VENLAFAXINE HYDROCHLORIDE
     Dosage: 1 DOSAGE FORM, QD (ONE TO BE TAKEN EACH DAY )
     Route: 065
  15. FLUTICASONE FUROATE\VILANTEROL TRIFENATATE [Concomitant]
     Active Substance: FLUTICASONE FUROATE\VILANTEROL TRIFENATATE
     Dosage: UNK, QD(ONE DOSE TO BE INHALED EACH DAY)
     Route: 055

REACTIONS (1)
  - Ileus [Unknown]
